FAERS Safety Report 10467039 (Version 1)
Quarter: 2014Q3

REPORT INFORMATION
  Report Type: Spontaneous
  Country: GB (occurrence: GB)
  Receive Date: 20140922
  Receipt Date: 20140922
  Transmission Date: 20150326
  Serious: Yes (Other)
  Sender: FDA-Public Use
  Company Number: GB-TEVA-509367ISR

PATIENT
  Age: 27 Year
  Sex: Female
  Weight: 62.13 kg

DRUGS (1)
  1. CLARITHROMYCIN. [Suspect]
     Active Substance: CLARITHROMYCIN
     Indication: TINEA PEDIS
     Dosage: 1000 MILLIGRAM DAILY;
     Route: 048
     Dates: start: 20140902, end: 20140904

REACTIONS (10)
  - Somnolence [Recovered/Resolved]
  - Anosmia [Recovered/Resolved]
  - Abnormal weight gain [Not Recovered/Not Resolved]
  - Hunger [Not Recovered/Not Resolved]
  - Chest pain [Not Recovered/Not Resolved]
  - Somnolence [Not Recovered/Not Resolved]
  - Sleep disorder [Not Recovered/Not Resolved]
  - Abnormal dreams [Recovered/Resolved]
  - Asthenia [Recovered/Resolved]
  - Muscle tightness [Unknown]

NARRATIVE: CASE EVENT DATE: 20140902
